FAERS Safety Report 5662700-5 (Version None)
Quarter: 2008Q1

REPORT INFORMATION
  Report Type: 
  Country: None (occurrence: None)
  Receive Date: 20080313
  Receipt Date: 20080305
  Transmission Date: 20080703
  Serious: Yes (Life-Threatening, Other)
  Sender: FDA-Public Use
  Company Number: CH-AVENTIS-200811781GDDC

PATIENT
  Age: 58 Year
  Sex: Male

DRUGS (9)
  1. MINIRIN [Suspect]
     Route: 048
  2. MINIRIN [Suspect]
  3. MINIRIN [Suspect]
     Route: 048
  4. CORTISONE ACETATE [Concomitant]
     Route: 048
  5. LEVOTHYROXINE SODIUM [Concomitant]
     Route: 048
  6. TESTOSTERONE ENANTHATE [Concomitant]
     Route: 030
  7. SOTALOL HYDROCHLORIDE [Concomitant]
     Route: 048
  8. PHENPROCOUMON [Concomitant]
     Indication: ATRIAL FIBRILLATION
     Route: 048
  9. PHENPROCOUMON [Concomitant]
     Indication: ATRIAL FLUTTER
     Route: 048

REACTIONS (5)
  - BLOOD OSMOLARITY DECREASED [None]
  - DRUG TOXICITY [None]
  - HYPONATRAEMIA [None]
  - INAPPROPRIATE ANTIDIURETIC HORMONE SECRETION [None]
  - SOMNOLENCE [None]
